FAERS Safety Report 25984819 (Version 3)
Quarter: 2025Q4

REPORT INFORMATION
  Report Type: Spontaneous
  Country: US (occurrence: US)
  Receive Date: 20251031
  Receipt Date: 20251121
  Transmission Date: 20260117
  Serious: No
  Sender: TRAVERE THERAPEUTICS
  Company Number: US-TRAVERE-2025TVT01774

PATIENT
  Age: 74 Year
  Sex: Female

DRUGS (3)
  1. FILSPARI [Suspect]
     Active Substance: SPARSENTAN
     Indication: IgA nephropathy
     Route: 048
  2. FILSPARI [Suspect]
     Active Substance: SPARSENTAN
     Route: 048
     Dates: start: 202509, end: 20251029
  3. FILSPARI [Suspect]
     Active Substance: SPARSENTAN
     Route: 048
     Dates: start: 20250716

REACTIONS (6)
  - Generalised oedema [None]
  - Dyspnoea [None]
  - Decreased appetite [Unknown]
  - Swelling face [Unknown]
  - Limb discomfort [Unknown]
  - Discomfort [Unknown]

NARRATIVE: CASE EVENT DATE: 20250901
